FAERS Safety Report 11750283 (Version 2)
Quarter: 2016Q1

REPORT INFORMATION
  Report Type: Spontaneous
  Country: JP (occurrence: JP)
  Receive Date: 20151118
  Receipt Date: 20160104
  Transmission Date: 20160525
  Serious: Yes (Other)
  Sender: FDA-Public Use
  Company Number: JP-BRISTOL-MYERS SQUIBB COMPANY-BMS-2015-079637

PATIENT
  Age: 43 Year
  Sex: Female
  Weight: 45 kg

DRUGS (3)
  1. ERBITUX [Suspect]
     Active Substance: CETUXIMAB
     Indication: SALIVARY GLAND CANCER
     Dosage: 560 MG, QWK
     Route: 041
     Dates: start: 20151019, end: 20151019
  2. PACLITAXEL. [Concomitant]
     Active Substance: PACLITAXEL
     Indication: SALIVARY GLAND CANCER
     Dosage: 110 MG, QWK
     Route: 041
     Dates: start: 20151019
  3. ERBITUX [Suspect]
     Active Substance: CETUXIMAB
     Dosage: 350 MG, QWK
     Route: 041
     Dates: start: 20151102

REACTIONS (1)
  - Hyponatraemia [Recovered/Resolved]

NARRATIVE: CASE EVENT DATE: 20151020
